FAERS Safety Report 20651861 (Version 5)
Quarter: 2022Q2

REPORT INFORMATION
  Report Type: Spontaneous
  Country: US (occurrence: None)
  Receive Date: 20220330
  Receipt Date: 20220615
  Transmission Date: 20220721
  Serious: Yes (Other)
  Sender: FDA-Public Use
  Company Number: US-ROCHE-3057727

PATIENT
  Age: 75 Year
  Sex: Female

DRUGS (17)
  1. ZELBORAF [Suspect]
     Active Substance: VEMURAFENIB
     Indication: Thyroid cancer
     Route: 048
     Dates: start: 20220222, end: 20220315
  2. ASPIRIN [Concomitant]
     Active Substance: ASPIRIN
  3. ATORVASTATIN [Concomitant]
     Active Substance: ATORVASTATIN
  4. BACLOFEN [Concomitant]
     Active Substance: BACLOFEN
  5. BIOTIN [Concomitant]
     Active Substance: BIOTIN
  6. CHOLECALCIFEROL [Concomitant]
     Active Substance: CHOLECALCIFEROL
  7. DICLOFENAC [Concomitant]
     Active Substance: DICLOFENAC
  8. ELIQUIS [Concomitant]
     Active Substance: APIXABAN
  9. EPINEPHRINE [Concomitant]
     Active Substance: EPINEPHRINE
  10. INDOMETHACIN [Concomitant]
     Active Substance: INDOMETHACIN
  11. LEVOTHYROXINE [Concomitant]
     Active Substance: LEVOTHYROXINE
  12. LIDOCAINE [Concomitant]
     Active Substance: LIDOCAINE
  13. LIDOCAINE [Concomitant]
     Active Substance: LIDOCAINE
  14. LOSARTAN [Concomitant]
     Active Substance: LOSARTAN
  15. MAGNESIUM OXIDE [Concomitant]
     Active Substance: MAGNESIUM OXIDE
  16. OMEGA-3 FATTY ACIDS [Concomitant]
     Active Substance: OMEGA-3 FATTY ACIDS
  17. XARELTO [Concomitant]
     Active Substance: RIVAROXABAN

REACTIONS (10)
  - Off label use [Unknown]
  - Urticaria [Unknown]
  - Peripheral swelling [Unknown]
  - Yellow skin [Unknown]
  - Fatigue [Unknown]
  - Arthralgia [Unknown]
  - Sunburn [Unknown]
  - Infection [Recovered/Resolved]
  - Illness [Recovered/Resolved]
  - Muscle spasms [Recovered/Resolved]

NARRATIVE: CASE EVENT DATE: 20220315
